FAERS Safety Report 14360515 (Version 4)
Quarter: 2018Q4

REPORT INFORMATION
  Report Type: Report from Study
  Country: US (occurrence: US)
  Receive Date: 20180106
  Receipt Date: 20181027
  Transmission Date: 20190204
  Serious: No
  Sender: FDA-Public Use
  Company Number: PHEH2018US000798

PATIENT
  Sex: Male

DRUGS (1)
  1. ENTRESTO [Suspect]
     Active Substance: SACUBITRIL\VALSARTAN
     Indication: PRODUCT USED FOR UNKNOWN INDICATION
     Dosage: 50 MG (SACUBITRIL 24 MG/ VALSARTAN 26 MG), UNK
     Route: 048

REACTIONS (7)
  - Depressed mood [Unknown]
  - Nasopharyngitis [Unknown]
  - Malaise [Unknown]
  - Feeling abnormal [Unknown]
  - Weight decreased [Unknown]
  - Blood potassium increased [Unknown]
  - Dizziness [Unknown]
